FAERS Safety Report 4476162-7 (Version None)
Quarter: 2004Q3

REPORT INFORMATION
  Report Type: 
  Country: None (occurrence: None)
  Receive Date: 20040923
  Receipt Date: 20040811
  Transmission Date: 20050211
  Serious: No
  Sender: FDA-Public Use
  Company Number: USA040875194

PATIENT
  Age: 73 Year
  Sex: Female
  Weight: 52 kg

DRUGS (2)
  1. FORTEO [Suspect]
     Indication: OSTEOPOROSIS
     Dosage: 20 UG/1 DAY
     Dates: start: 20040501
  2. ACETAMINOPHEN W/PROPOXYPHENE [Concomitant]

REACTIONS (5)
  - ANOREXIA [None]
  - ARTHRALGIA [None]
  - BONE PAIN [None]
  - PARAESTHESIA [None]
  - WEIGHT DECREASED [None]
